FAERS Safety Report 24924943 (Version 1)
Quarter: 2025Q1

REPORT INFORMATION
  Report Type: Report from Study
  Country: US (occurrence: US)
  Receive Date: 20250204
  Receipt Date: 20250204
  Transmission Date: 20250408
  Serious: No
  Sender: EXELIXIS
  Company Number: US-EXELIXIS-CABO-24077297

PATIENT
  Sex: Male

DRUGS (17)
  1. CABOMETYX [Suspect]
     Active Substance: CABOZANTINIB S-MALATE
     Indication: Renal cell carcinoma
     Dates: start: 20240420, end: 20240423
  2. CABOMETYX [Suspect]
     Active Substance: CABOZANTINIB S-MALATE
     Dates: start: 20240430, end: 20240506
  3. CABOMETYX [Suspect]
     Active Substance: CABOZANTINIB S-MALATE
     Dates: start: 20240613, end: 20240625
  4. CABOMETYX [Suspect]
     Active Substance: CABOZANTINIB S-MALATE
     Dates: start: 20240702
  5. PREDNISONE [Concomitant]
     Active Substance: PREDNISONE
  6. ATROPINE\DIPHENOXYLATE [Concomitant]
     Active Substance: ATROPINE\DIPHENOXYLATE
  7. LOPERAMIDE [Concomitant]
     Active Substance: LOPERAMIDE
  8. LATANOPROST [Concomitant]
     Active Substance: LATANOPROST
  9. TAMSULOSIN [Concomitant]
     Active Substance: TAMSULOSIN
  10. TIMOLOL [Concomitant]
     Active Substance: TIMOLOL
  11. PROCHLORPERAZINE [Concomitant]
     Active Substance: PROCHLORPERAZINE
  12. VITAMIN D [Concomitant]
     Active Substance: VITAMIN D NOS
  13. NARCAN [Concomitant]
     Active Substance: NALOXONE HYDROCHLORIDE
  14. BACTRIM [Concomitant]
     Active Substance: SULFAMETHOXAZOLE\TRIMETHOPRIM
  15. OXYBUTYNIN [Concomitant]
     Active Substance: OXYBUTYNIN
  16. FINASTERIDE [Concomitant]
     Active Substance: FINASTERIDE
  17. FENTANYL [Concomitant]
     Active Substance: FENTANYL

REACTIONS (9)
  - Somnolence [Unknown]
  - Taste disorder [Not Recovered/Not Resolved]
  - Nausea [Not Recovered/Not Resolved]
  - Diarrhoea [Recovered/Resolved]
  - Fatigue [Not Recovered/Not Resolved]
  - Decreased appetite [Not Recovered/Not Resolved]
  - Weight decreased [Not Recovered/Not Resolved]
  - Chest discomfort [Recovering/Resolving]
  - Surgery [Unknown]
